FAERS Safety Report 24223649 (Version 1)
Quarter: 2024Q3

REPORT INFORMATION
  Report Type: Spontaneous
  Country: US (occurrence: None)
  Receive Date: 20240819
  Receipt Date: 20240819
  Transmission Date: 20241017
  Serious: No
  Sender: Public
  Company Number: None

PATIENT
  Sex: Female

DRUGS (1)
  1. AMBRISENTAN [Suspect]
     Active Substance: AMBRISENTAN
     Indication: Pulmonary arterial hypertension
     Dosage: 5MG ONCE DAILY ORAL
     Route: 048
     Dates: start: 202110

REACTIONS (4)
  - Dyspnoea [None]
  - Fluid retention [None]
  - Pulmonary arterial hypertension [None]
  - Condition aggravated [None]
